FAERS Safety Report 21083324 (Version 9)
Quarter: 2023Q1

REPORT INFORMATION
  Report Type: Spontaneous
  Country: BR (occurrence: BR)
  Receive Date: 20220714
  Receipt Date: 20230310
  Transmission Date: 20230418
  Serious: Yes (Death, Hospitalization, Other)
  Sender: FDA-Public Use
  Company Number: BR-002147023-NVSC2022BR152495

PATIENT

DRUGS (14)
  1. RUXOLITINIB [Suspect]
     Active Substance: RUXOLITINIB
     Indication: Myelofibrosis
     Dosage: UNK (EVERY 12 HOURS OR TWICE A DAY, AFTER DOING THE BONE MARROW TRANSPLANT)
     Route: 048
     Dates: start: 2021
  2. RUXOLITINIB [Suspect]
     Active Substance: RUXOLITINIB
     Dosage: 2 DOSAGE FORM (2 TABLETS ONE FOR AND ONE AT NIGHT AS REPORTED)
     Route: 048
  3. RUXOLITINIB [Suspect]
     Active Substance: RUXOLITINIB
     Dosage: 20 MG (60 TABLETS, 2 TABLETS A DAY)
     Route: 065
     Dates: start: 202105
  4. RUXOLITINIB [Suspect]
     Active Substance: RUXOLITINIB
     Dosage: 2 DOSAGE FORM, PER DAY
     Route: 065
     Dates: start: 20210506
  5. RUXOLITINIB [Suspect]
     Active Substance: RUXOLITINIB
     Dosage: 2 DOSAGE FORM, PER DAY
     Route: 065
     Dates: start: 20210506
  6. CARVEDILOL [Concomitant]
     Active Substance: CARVEDILOL
     Indication: Hypertension
     Dosage: 2 DOSAGE FORM, QD (2 DOSAGE FORM A DAY, 2 TABLETS PER DAY)
     Route: 065
  7. CARVEDILOL [Concomitant]
     Active Substance: CARVEDILOL
     Dosage: UNK, BID (2X A DAY, 1 YEAR)
     Route: 048
  8. RAMIPRIL [Concomitant]
     Active Substance: RAMIPRIL
     Indication: Hypertension
     Dosage: UNK (SUSPENDED AFTER THE PATIENT WAS HOSPITALIZED)
     Route: 065
  9. RAMIPRIL [Concomitant]
     Active Substance: RAMIPRIL
     Dosage: 15 MG, BID (10+5 MG, 2X A DAY, 1 YEAR, 1 TABLET PER DAY)
     Route: 048
  10. RAMIPRIL [Concomitant]
     Active Substance: RAMIPRIL
     Dosage: 1 DOSAGE FORM, QD
     Route: 065
  11. BROMAZEPAM [Concomitant]
     Active Substance: BROMAZEPAM
     Indication: Sleep disorder
     Dosage: 1 DOSAGE FORM, QD (AT NIGHT)
     Route: 065
  12. BROMAZEPAM [Concomitant]
     Active Substance: BROMAZEPAM
     Indication: Depression
     Dosage: 6 MG, BID (2X A DAY, MORE THAN 15 YEARS)
     Route: 048
  13. PREGABALIN [Concomitant]
     Active Substance: PREGABALIN
     Indication: Anxiety
     Dosage: 75 MG, QD (1 TABLET A DAY, 2 YEARS)
     Route: 048
  14. PREGABALIN [Concomitant]
     Active Substance: PREGABALIN
     Dosage: 1 DOSAGE FORM, QD
     Route: 065

REACTIONS (27)
  - Blood lactate dehydrogenase increased [Unknown]
  - Anaemia [Not Recovered/Not Resolved]
  - Aortic arteriosclerosis [Unknown]
  - Pleural effusion [Unknown]
  - Blood creatinine increased [Unknown]
  - Diabetic metabolic decompensation [Recovering/Resolving]
  - Diabetes mellitus [Unknown]
  - Dizziness [Recovered/Resolved]
  - Glomerular filtration rate decreased [Unknown]
  - Blood glucose increased [Unknown]
  - Haemoglobin decreased [Unknown]
  - Reticulocyte count increased [Unknown]
  - Kidney infection [Unknown]
  - Blood uric acid decreased [Unknown]
  - Malaise [Unknown]
  - Aspartate aminotransferase increased [Unknown]
  - Platelet count increased [Unknown]
  - Pulmonary mass [Unknown]
  - Alanine aminotransferase increased [Unknown]
  - Metabolic acidosis [Fatal]
  - Atelectasis [Unknown]
  - Blood thyroid stimulating hormone increased [Unknown]
  - COVID-19 [Recovered/Resolved]
  - Blood cholesterol increased [Unknown]
  - Blood urea increased [Unknown]
  - Urinary tract inflammation [Recovered/Resolved]
  - Urinary tract infection [Recovering/Resolving]

NARRATIVE: CASE EVENT DATE: 20221001
